FAERS Safety Report 6444502-5 (Version None)
Quarter: 2009Q4

REPORT INFORMATION
  Report Type: 
  Country: None (occurrence: None)
  Receive Date: 20091118
  Receipt Date: 20091110
  Transmission Date: 20100525
  Serious: Yes (Hospitalization)
  Sender: FDA-Public Use
  Company Number: FR-PFIZER INC-2009295348

PATIENT
  Age: 38 Year
  Sex: Female

DRUGS (4)
  1. SALAZOPYRIN [Suspect]
     Indication: RHEUMATOID ARTHRITIS
     Dosage: 1 DF, 2X/DAY
     Route: 048
     Dates: start: 20091012, end: 20091023
  2. FELDENE [Concomitant]
     Indication: POLYARTHRITIS
     Dosage: 20 MG, UNK
     Route: 048
     Dates: end: 20091023
  3. LANZOR [Concomitant]
     Indication: PROPHYLAXIS
     Dosage: 15 MG, 1X/DAY
     Route: 048
     Dates: end: 20091023
  4. DAFALGAN [Concomitant]
     Indication: ARTHRALGIA
     Dosage: 500 MG, UNK
     Route: 048
     Dates: end: 20091023

REACTIONS (2)
  - DRUG RASH WITH EOSINOPHILIA AND SYSTEMIC SYMPTOMS [None]
  - HISTIOCYTOSIS HAEMATOPHAGIC [None]
